FAERS Safety Report 20854897 (Version 1)
Quarter: 2022Q2

REPORT INFORMATION
  Report Type: Spontaneous
  Country: US (occurrence: US)
  Receive Date: 20220520
  Receipt Date: 20220520
  Transmission Date: 20220721
  Serious: Yes (Death, Life-Threatening, Hospitalization)
  Sender: FDA-Public Use
  Company Number: US-TEVA-2022-US-2038638

PATIENT
  Age: 67 Year
  Sex: Male
  Weight: 89 kg

DRUGS (13)
  1. POTASSIUM CHLORIDE [Suspect]
     Active Substance: POTASSIUM CHLORIDE
     Indication: Supplementation therapy
     Dosage: 20 MILLIEQUIVALENTS DAILY; 20 MEQ, 1X/DAY,
     Route: 048
     Dates: end: 20111105
  2. LEVOFLOXACIN [Suspect]
     Active Substance: LEVOFLOXACIN
     Dosage: 750 MG/ D5W 150 ML Q24H, IVPB, INTRAVENOUS
     Route: 042
     Dates: start: 20111015, end: 20111018
  3. VANCOMYCIN [Suspect]
     Active Substance: VANCOMYCIN
     Dosage: 1750 MG, ONCE, IVPB, INTRAVENOUS
     Route: 042
     Dates: start: 20111015, end: 20111015
  4. LEVOTHYROXINE [Suspect]
     Active Substance: LEVOTHYROXINE
     Indication: Hypothyroidism
     Dosage: 50 MICROGRAM DAILY;
     Route: 048
     Dates: end: 20111105
  5. CRIZOTINIB [Suspect]
     Active Substance: CRIZOTINIB
     Indication: Non-small cell lung cancer
     Dosage: 500 MILLIGRAM DAILY;
     Route: 048
     Dates: start: 20110603, end: 20111024
  6. BENZONATATE [Suspect]
     Active Substance: BENZONATATE
     Indication: Cough
     Route: 048
     Dates: end: 20111105
  7. MEROPENEM [Suspect]
     Active Substance: MEROPENEM
     Dosage: 1 GRAM IN 50 ML NS Q8H, IVPB, INTRAVENOUS
     Route: 042
  8. ASPIRIN [Suspect]
     Active Substance: ASPIRIN
     Indication: Cardiovascular event prophylaxis
     Dosage: 80 MILLIGRAM DAILY;
     Route: 048
     Dates: start: 20111105
  9. ZETIA [Suspect]
     Active Substance: EZETIMIBE
     Indication: Hyperlipidaemia
     Route: 048
     Dates: end: 20111105
  10. ZOCOR [Suspect]
     Active Substance: SIMVASTATIN
     Indication: Hyperlipidaemia
     Route: 048
     Dates: end: 20111105
  11. COREG [Suspect]
     Active Substance: CARVEDILOL
     Indication: Hypertension
     Dosage: 3.125 MILLIGRAM DAILY;
     Route: 048
     Dates: end: 20111010
  12. LASIX [Suspect]
     Active Substance: FUROSEMIDE
     Indication: Hypertension
     Route: 065
  13. FLUZONE [Suspect]
     Active Substance: INFLUENZA A VIRUS A/CALIFORNIA/7/2009 X-179A (H1N1) ANTIGEN (FORMALDEHYDE INACTIVATED)\INFLUENZA A V
     Dosage: 1 DF, SINGLE, INJECTION, SUBCUTANEOUS
     Route: 058
     Dates: start: 20111005, end: 20111005

REACTIONS (6)
  - Non-small cell lung cancer [Fatal]
  - Disease progression [Fatal]
  - Failure to thrive [Unknown]
  - Orthostatic hypotension [Recovering/Resolving]
  - Constipation [Unknown]
  - Ileus [Unknown]

NARRATIVE: CASE EVENT DATE: 20111012
